FAERS Safety Report 9995831 (Version 1)
Quarter: 2014Q1

REPORT INFORMATION
  Report Type: Spontaneous
  Country: US (occurrence: None)
  Receive Date: 20140225
  Receipt Date: 20140225
  Transmission Date: 20141002
  Serious: Yes (Other)
  Sender: FDA-Public Use
  Company Number: 2013-389

PATIENT
  Age: 61 Year
  Sex: Male

DRUGS (3)
  1. PRIALT (ZICONOTIDE) INTRATHECAL INFUSION [Suspect]
     Indication: PAIN
     Route: 037
     Dates: start: 2003
  2. BACLOFEN (BACLOFEN) INJECTION [Suspect]
     Indication: PAIN
     Route: 037
  3. FLEXERIL [Concomitant]

REACTIONS (3)
  - Hallucination [None]
  - Impaired healing [None]
  - Seborrhoea [None]
